FAERS Safety Report 8273630-7 (Version None)
Quarter: 2012Q2

REPORT INFORMATION
  Report Type: 
  Country: None (occurrence: None)
  Receive Date: 20120411
  Receipt Date: 20120210
  Transmission Date: 20120825
  Serious: No
  Sender: FDA-Public Use
  Company Number: US-TEVA-321992USA

PATIENT
  Sex: Female
  Weight: 65.83 kg

DRUGS (9)
  1. NATALIZUMAB [Suspect]
     Indication: MULTIPLE SCLEROSIS
     Dates: start: 20110801
  2. GABAPENTIN [Concomitant]
     Dosage: 2400 MILLIGRAM;
     Route: 048
  3. CITALOPRAM HYDROBROMIDE [Concomitant]
     Dosage: 40 MILLIGRAM;
     Route: 048
  4. NUVIGIL [Suspect]
     Indication: FATIGUE
     Dosage: 250 MILLIGRAM;
     Route: 048
  5. VICODIN [Concomitant]
     Indication: PAIN
     Dosage: PRN
     Route: 048
  6. NUVIGIL [Suspect]
     Indication: HYPERSOMNIA
  7. ESTRADIOL [Concomitant]
     Indication: BLOOD OESTROGEN
     Dosage: 2 MILLIGRAM;
     Route: 048
  8. ESOMEPRAZOLE MAGNESIUM [Concomitant]
     Dosage: 80 MILLIGRAM;
     Route: 048
  9. ZONISAMIDE [Concomitant]
     Dosage: 100 MILLIGRAM;
     Route: 048

REACTIONS (3)
  - PALPITATIONS [None]
  - DYSPNOEA [None]
  - CHEST PAIN [None]
